APPROVED DRUG PRODUCT: PENICILLAMINE
Active Ingredient: PENICILLAMINE
Strength: 250MG
Dosage Form/Route: CAPSULE;ORAL
Application: A213310 | Product #001
Applicant: APOTEX INC
Approved: Apr 28, 2020 | RLD: No | RS: No | Type: DISCN